FAERS Safety Report 25889759 (Version 1)
Quarter: 2025Q4

REPORT INFORMATION
  Report Type: Report from Study
  Country: US (occurrence: US)
  Receive Date: 20251007
  Receipt Date: 20251007
  Transmission Date: 20260118
  Serious: Yes (Other)
  Sender: ALEXION PHARMACEUTICALS
  Company Number: US-AstraZeneca-CH-00964634A

PATIENT
  Sex: Male

DRUGS (1)
  1. OLAPARIB [Suspect]
     Active Substance: OLAPARIB
     Route: 065

REACTIONS (5)
  - Glioblastoma multiforme [Unknown]
  - Malignant neoplasm progression [Unknown]
  - Hemiparesis [Unknown]
  - Recurrent cancer [Unknown]
  - Visual field defect [Unknown]
